FAERS Safety Report 18565026 (Version 1)
Quarter: 2020Q4

REPORT INFORMATION
  Report Type: Spontaneous
  Country: US (occurrence: US)
  Receive Date: 20201201
  Receipt Date: 20201201
  Transmission Date: 20210114
  Serious: No
  Sender: FDA-Public Use
  Company Number: US-JNJFOC-20201140481

PATIENT
  Sex: Female

DRUGS (1)
  1. WOMENS ROGAINE UNSCENTED [Suspect]
     Active Substance: MINOXIDIL
     Indication: ALOPECIA
     Dosage: DOSE: APPROXIMATELY HALF A CAPFUL?PRODUCT LAST ADMINISTERED ON 18-NOV-2020
     Route: 061
     Dates: start: 202010

REACTIONS (2)
  - Incorrect dose administered [Unknown]
  - Alopecia [Not Recovered/Not Resolved]

NARRATIVE: CASE EVENT DATE: 2020
